FAERS Safety Report 8825547 (Version 1)
Quarter: 2012Q4

REPORT INFORMATION
  Report Type: 
  Country: AU (occurrence: AU)
  Receive Date: 20121004
  Receipt Date: 20121004
  Transmission Date: 20130627
  Serious: Yes (Death, Hospitalization, Other)
  Sender: FDA-Public Use
  Company Number: AU-CELGENEUS-008-50794-12092912

PATIENT

DRUGS (1)
  1. VIDAZA [Suspect]
     Indication: CHRONIC MYELOMONOCYTIC LEUKEMIA
     Dosage: 75 milligram/sq. meter
     Route: 058

REACTIONS (9)
  - Death [Fatal]
  - Histiocytosis haematophagic [Unknown]
  - Infection [Unknown]
  - Acute myeloid leukaemia [Unknown]
  - Chronic myelomonocytic leukaemia [Unknown]
  - Skin reaction [Unknown]
  - Nausea [Unknown]
  - No therapeutic response [Unknown]
  - Concomitant disease aggravated [Unknown]
